FAERS Safety Report 15121701 (Version 2)
Quarter: 2018Q3

REPORT INFORMATION
  Report Type: Report from Study
  Country: US (occurrence: US)
  Receive Date: 20180709
  Receipt Date: 20180829
  Transmission Date: 20181010
  Serious: Yes (Hospitalization)
  Sender: FDA-Public Use
  Company Number: US-JNJFOC-20180613074

PATIENT
  Age: 66 Year
  Sex: Female

DRUGS (24)
  1. VITAMIN D [Concomitant]
     Active Substance: CHOLECALCIFEROL
  2. MAPAP [Concomitant]
     Active Substance: ACETAMINOPHEN
  3. DULCOLAX NOS [Concomitant]
     Active Substance: BISACODYL OR DOCUSATE SODIUM
  4. PREDNISONE. [Concomitant]
     Active Substance: PREDNISONE
  5. LEVAQUIN [Concomitant]
     Active Substance: LEVOFLOXACIN
  6. ZANTAC [Concomitant]
     Active Substance: RANITIDINE HYDROCHLORIDE
  7. IRON [Concomitant]
     Active Substance: IRON
  8. SYNTHROID [Concomitant]
     Active Substance: LEVOTHYROXINE SODIUM
  9. ALLOPURINOL. [Concomitant]
     Active Substance: ALLOPURINOL
  10. IMBRUVICA [Concomitant]
     Active Substance: IBRUTINIB
     Indication: CHRONIC LYMPHOCYTIC LEUKAEMIA
     Route: 048
     Dates: start: 20170822, end: 20180501
  11. OMEPRAZOLE. [Concomitant]
     Active Substance: OMEPRAZOLE
  12. HYDROCHLOROTHIAZIDE. [Concomitant]
     Active Substance: HYDROCHLOROTHIAZIDE
  13. COLCRYS [Concomitant]
     Active Substance: COLCHICINE
  14. SIMVASTATIN. [Concomitant]
     Active Substance: SIMVASTATIN
  15. ACYCLOVIR. [Concomitant]
     Active Substance: ACYCLOVIR
  16. IMBRUVICA [Suspect]
     Active Substance: IBRUTINIB
     Indication: CHRONIC LYMPHOCYTIC LEUKAEMIA
     Route: 048
     Dates: start: 20180502
  17. BUSPIRONE [Concomitant]
     Active Substance: BUSPIRONE HYDROCHLORIDE
  18. POTASSIUM [Concomitant]
     Active Substance: POTASSIUM
  19. MELOXICAM. [Concomitant]
     Active Substance: MELOXICAM
  20. ASPIRIN. [Concomitant]
     Active Substance: ASPIRIN
  21. HYOSCYAMINE SULFATE. [Concomitant]
     Active Substance: HYOSCYAMINE SULFATE
  22. FUROSEMIDE. [Concomitant]
     Active Substance: FUROSEMIDE
  23. LISINOPRIL. [Concomitant]
     Active Substance: LISINOPRIL
  24. KEFLEX [Concomitant]
     Active Substance: CEPHALEXIN

REACTIONS (3)
  - Urinary tract infection [Not Recovered/Not Resolved]
  - Dehydration [Unknown]
  - Gout [Not Recovered/Not Resolved]

NARRATIVE: CASE EVENT DATE: 20180507
